FAERS Safety Report 18544946 (Version 1)
Quarter: 2020Q4

REPORT INFORMATION
  Report Type: Spontaneous
  Country: IN (occurrence: IN)
  Receive Date: 20201125
  Receipt Date: 20201125
  Transmission Date: 20210114
  Serious: Yes (Other)
  Sender: FDA-Public Use
  Company Number: IN-ALLERGAN-2045442US

PATIENT
  Sex: Male

DRUGS (2)
  1. OZURDEX [Suspect]
     Active Substance: DEXAMETHASONE
     Indication: DIABETIC RETINAL OEDEMA
     Dosage: 0.7 MG, SINGLE
     Route: 031
     Dates: start: 202011, end: 202011
  2. BROMFENAC [Concomitant]
     Active Substance: BROMFENAC SODIUM
     Dosage: 2 DF, QD

REACTIONS (7)
  - Uveitis [Unknown]
  - Endophthalmitis [Unknown]
  - Visual impairment [Unknown]
  - Bacterial infection [Unknown]
  - Eye pain [Unknown]
  - Hypopyon [Unknown]
  - Ocular hyperaemia [Unknown]

NARRATIVE: CASE EVENT DATE: 202011
